FAERS Safety Report 4959090-X (Version None)
Quarter: 2006Q1

REPORT INFORMATION
  Report Type: 
  Country: None (occurrence: None)
  Receive Date: 20060331
  Receipt Date: 20051004
  Transmission Date: 20060701
  Serious: Yes (Hospitalization, Other)
  Sender: FDA-Public Use
  Company Number: PHBS2005AT14668

PATIENT
  Sex: Female

DRUGS (3)
  1. XELODA [Concomitant]
     Dosage: 500 MG 3-0-3
     Route: 065
  2. BONIVA [Concomitant]
     Dosage: 6 MG/6ML, ONCE MONTHLY
     Dates: start: 20050801
  3. ZOMETA [Suspect]
     Indication: METASTASES TO BONE
     Dosage: 4 MG, QMO
     Route: 042
     Dates: start: 20040101, end: 20050801

REACTIONS (4)
  - BONE DISORDER [None]
  - BONE TRIMMING [None]
  - OSTEOMYELITIS [None]
  - OSTEONECROSIS [None]
